FAERS Safety Report 8573867-3 (Version None)
Quarter: 2012Q3

REPORT INFORMATION
  Report Type: 
  Country: None (occurrence: None)
  Receive Date: 20120806
  Receipt Date: 20120123
  Transmission Date: 20120928
  Serious: No
  Sender: FDA-Public Use
  Company Number: US-GLAXOSMITHKLINE-A0962717A

PATIENT
  Sex: Female

DRUGS (5)
  1. TOPAMAX [Concomitant]
  2. CALCIUM [Concomitant]
  3. RECLAST [Concomitant]
  4. FLUTICASONE PROPIONATE [Suspect]
     Indication: ASTHMA
     Dosage: 2PUFF TWICE PER DAY
     Route: 055
     Dates: end: 20120201
  5. CEPHALEXIN [Concomitant]

REACTIONS (9)
  - COUGH [None]
  - TOOTH DISORDER [None]
  - GLOSSODYNIA [None]
  - GLOSSITIS [None]
  - PAIN IN JAW [None]
  - RESPIRATORY TRACT IRRITATION [None]
  - STOMATITIS [None]
  - LYMPH NODE PAIN [None]
  - CHEST DISCOMFORT [None]
